FAERS Safety Report 6810281-2 (Version None)
Quarter: 2010Q2

REPORT INFORMATION
  Report Type: 
  Country: None (occurrence: None)
  Receive Date: 20100630
  Receipt Date: 20100629
  Transmission Date: 20101027
  Serious: Yes (Hospitalization)
  Sender: FDA-Public Use
  Company Number: GXKR2010DE07153

PATIENT
  Age: 16 Year
  Sex: Male
  Weight: 70 kg

DRUGS (1)
  1. TRAMADOL (NGX) [Suspect]
     Indication: RENAL COLIC
     Dosage: 20 GTT, TID
     Dates: start: 20100411, end: 20100413

REACTIONS (7)
  - DYSPNOEA [None]
  - DYSTONIA [None]
  - HEADACHE [None]
  - MUSCULOSKELETAL PAIN [None]
  - PAIN IN JAW [None]
  - PROTRUSION TONGUE [None]
  - SEROTONIN SYNDROME [None]
